FAERS Safety Report 11530582 (Version 1)
Quarter: 2015Q3

REPORT INFORMATION
  Report Type: Spontaneous
  Country: US (occurrence: US)
  Receive Date: 20150921
  Receipt Date: 20150921
  Transmission Date: 20151125
  Serious: No
  Sender: FDA-Public Use
  Company Number: US-GLAXOSMITHKLINE-US2015GSK108632

PATIENT
  Sex: Female

DRUGS (3)
  1. ADVAIR HFA [Suspect]
     Active Substance: FLUTICASONE PROPIONATE\SALMETEROL XINAFOATE
     Indication: ASTHMA
     Dosage: UNK, U
  2. SEREVENT DISKUS [Suspect]
     Active Substance: SALMETEROL XINAFOATE
     Indication: ASTHMA
     Dosage: UNK, U
     Route: 055
  3. FLOVENT [Suspect]
     Active Substance: FLUTICASONE PROPIONATE
     Indication: ASTHMA
     Dosage: UNK, U
     Route: 055

REACTIONS (9)
  - Impaired healing [Unknown]
  - Foot fracture [Unknown]
  - Drug ineffective [Unknown]
  - Bone fragmentation [Unknown]
  - Bone marrow disorder [Unknown]
  - Gait disturbance [Unknown]
  - Back injury [Not Recovered/Not Resolved]
  - Walking aid user [Unknown]
  - Joint injury [Unknown]

NARRATIVE: CASE EVENT DATE: 2015
